FAERS Safety Report 8824241 (Version 1)
Quarter: 2012Q4

REPORT INFORMATION
  Report Type: 
  Country: US (occurrence: US)
  Receive Date: 20121004
  Receipt Date: 20121004
  Transmission Date: 20130627
  Serious: No
  Sender: FDA-Public Use
  Company Number: US-BIOGENIDEC-2012BI042091

PATIENT
  Sex: Female

DRUGS (3)
  1. AVONEX [Suspect]
     Indication: MULTIPLE SCLEROSIS
     Route: 030
     Dates: start: 20110211
  2. MIRAPEX GENERIC [Concomitant]
     Indication: RESTLESS LEGS SYNDROME
  3. SUPPLEMENTAL PILL(NOS) [Concomitant]
     Indication: RESTLESS LEGS SYNDROME

REACTIONS (5)
  - Ovarian cyst [Recovered/Resolved]
  - Cholelithiasis [Recovered/Resolved]
  - Restless legs syndrome [Recovered/Resolved]
  - Abdominal discomfort [Recovered/Resolved]
  - Nausea [Recovered/Resolved]
